FAERS Safety Report 7926680 (Version 4)
Quarter: 2013Q3

REPORT INFORMATION
  Report Type: Spontaneous
  Country: US (occurrence: US)
  Receive Date: 20110502
  Receipt Date: 20130919
  Transmission Date: 20140515
  Serious: No
  Sender: FDA-Public Use
  Company Number: US-ASTRAZENECA-2011SE07578

PATIENT
  Age: 62 Year
  Sex: Male
  Weight: 65.8 kg

DRUGS (22)
  1. NEXIUM [Suspect]
     Indication: ULCER
     Route: 048
     Dates: start: 20101207
  2. NEXIUM [Interacting]
     Indication: GASTROOESOPHAGEAL REFLUX DISEASE
     Route: 048
     Dates: start: 20101207
  3. NEXIUM [Interacting]
     Indication: ULCER
     Route: 048
  4. NEXIUM [Interacting]
     Indication: GASTROOESOPHAGEAL REFLUX DISEASE
     Route: 048
  5. NEXIUM [Interacting]
     Indication: ULCER
     Route: 048
     Dates: start: 20101207
  6. NEXIUM [Interacting]
     Indication: GASTROOESOPHAGEAL REFLUX DISEASE
     Route: 048
     Dates: start: 20101207
  7. PRILOSEC [Suspect]
     Indication: ABDOMINAL DISCOMFORT
     Route: 048
     Dates: start: 1996
  8. PRILOSEC [Suspect]
     Indication: ABDOMINAL DISCOMFORT
     Route: 048
     Dates: start: 1996, end: 2010
  9. SEROQUEL [Suspect]
     Indication: DEPRESSION
     Route: 048
  10. SEROQUEL [Suspect]
     Indication: DEPRESSION
     Route: 048
  11. UNSPECIFIED [Interacting]
     Route: 065
  12. LORTAB [Concomitant]
     Dates: start: 1991
  13. SOMA [Concomitant]
     Indication: MUSCLE SPASMS
     Route: 048
     Dates: start: 1990
  14. VALIUM [Concomitant]
     Indication: ANXIETY
     Route: 048
  15. XANAX [Concomitant]
     Indication: ANXIETY
     Route: 048
     Dates: start: 2010
  16. HYDROCODONE [Concomitant]
     Indication: PAIN
     Dosage: 10 325MG Q3H
     Route: 048
     Dates: start: 2000
  17. TRAZADONE [Concomitant]
     Indication: DEPRESSION
     Route: 048
  18. MIRTAZAPINE [Concomitant]
     Indication: DEPRESSION
     Route: 048
     Dates: start: 2010
  19. CELEBREX [Concomitant]
     Indication: PAIN
  20. MOTRIN [Concomitant]
     Indication: PAIN
     Route: 048
  21. DARVOCET [Concomitant]
     Indication: PAIN
     Route: 048
  22. FLEXIRIL [Concomitant]
     Indication: MUSCLE SPASMS
     Route: 048

REACTIONS (29)
  - Drug interaction [Unknown]
  - Anxiety [Not Recovered/Not Resolved]
  - Arthritis [Unknown]
  - Feeling abnormal [Unknown]
  - Coordination abnormal [Unknown]
  - Weight decreased [Unknown]
  - Amnesia [Recovered/Resolved]
  - Nervousness [Unknown]
  - Pain [Unknown]
  - Spinal disorder [Unknown]
  - Body temperature decreased [Unknown]
  - Musculoskeletal discomfort [Unknown]
  - Dyspepsia [Unknown]
  - Spinal osteoarthritis [Not Recovered/Not Resolved]
  - Mental disorder [Recovered/Resolved]
  - Dementia Alzheimer^s type [Unknown]
  - Fall [Recovered/Resolved]
  - Tooth loss [Not Recovered/Not Resolved]
  - Muscle spasms [Unknown]
  - Depression [Not Recovered/Not Resolved]
  - Malaise [Unknown]
  - Abdominal discomfort [Unknown]
  - Nausea [Unknown]
  - Headache [Unknown]
  - Confusional state [Unknown]
  - Off label use [Unknown]
  - Intentional drug misuse [Unknown]
  - Drug effect incomplete [Unknown]
  - Drug ineffective [Unknown]
